FAERS Safety Report 12493500 (Version 1)
Quarter: 2016Q2

REPORT INFORMATION
  Report Type: Spontaneous
  Country: GB (occurrence: GB)
  Receive Date: 20160623
  Receipt Date: 20160623
  Transmission Date: 20160815
  Serious: Yes (Hospitalization)
  Sender: FDA-Public Use
  Company Number: GB-WATSON-2016-12765

PATIENT
  Age: 83 Year
  Sex: Female
  Weight: 60 kg

DRUGS (3)
  1. DIGOXIN. [Concomitant]
     Active Substance: DIGOXIN
     Indication: PRODUCT USED FOR UNKNOWN INDICATION
     Dosage: 125 ?G, DAILY (AFTER ORAL LOADING)
     Route: 065
  2. VERAPAMIL (UNKNOWN) [Suspect]
     Active Substance: VERAPAMIL HYDROCHLORIDE
     Indication: ATRIAL FIBRILLATION
     Dosage: 40 MG, SINGLE, STAT DOSE.
     Route: 048
     Dates: start: 20160526, end: 20160526
  3. BISOPROLOL [Concomitant]
     Active Substance: BISOPROLOL
     Indication: PRODUCT USED FOR UNKNOWN INDICATION
     Dosage: 10 MG, UNKNOWN
     Route: 065

REACTIONS (5)
  - Hypotension [Unknown]
  - Hepatic ischaemia [Recovering/Resolving]
  - Atrioventricular block complete [Recovered/Resolved]
  - Acute kidney injury [Recovering/Resolving]
  - Dyspnoea [Unknown]

NARRATIVE: CASE EVENT DATE: 20160526
